FAERS Safety Report 8113313-7 (Version None)
Quarter: 2012Q1

REPORT INFORMATION
  Report Type: 
  Country: None (occurrence: None)
  Receive Date: 20120203
  Receipt Date: 20120126
  Transmission Date: 20120608
  Serious: Yes (Hospitalization)
  Sender: FDA-Public Use
  Company Number: PHEH2011US011065

PATIENT
  Sex: Female

DRUGS (3)
  1. EXJADE [Suspect]
     Dosage: 1500 MG, QD
     Route: 048
  2. CAFFEINE [Concomitant]
  3. EXJADE [Suspect]
     Dosage: 1500 MG, QD
     Route: 048
     Dates: start: 20111203

REACTIONS (8)
  - INFECTION [None]
  - ASTHENIA [None]
  - FULL BLOOD COUNT DECREASED [None]
  - VISUAL IMPAIRMENT [None]
  - DIARRHOEA [None]
  - ABDOMINAL DISCOMFORT [None]
  - LIMB DISCOMFORT [None]
  - LOSS OF CONSCIOUSNESS [None]
